FAERS Safety Report 13786430 (Version 1)
Quarter: 2017Q3

REPORT INFORMATION
  Report Type: Spontaneous
  Country: US (occurrence: US)
  Receive Date: 20170725
  Receipt Date: 20170725
  Transmission Date: 20171127
  Serious: No
  Sender: FDA-Public Use
  Company Number: None

PATIENT
  Age: 34 Year
  Sex: Female
  Weight: 76.05 kg

DRUGS (1)
  1. MORPHINE [Suspect]
     Active Substance: MORPHINE
     Dosage: ?          OTHER FREQUENCY:Q3HPRN SEVERE PAIN;?3 MG INTRAVENOUS (NOT OTHERWISE SPECIFIED) ?
     Route: 042

REACTIONS (1)
  - Lethargy [None]

NARRATIVE: CASE EVENT DATE: 20170622
